FAERS Safety Report 7372787-X (Version None)
Quarter: 2011Q1

REPORT INFORMATION
  Report Type: 
  Country: None (occurrence: None)
  Receive Date: 20110324
  Receipt Date: 20091114
  Transmission Date: 20110831
  Serious: Yes (Other)
  Sender: FDA-Public Use
  Company Number: US-BAYER-200939569NA

PATIENT
  Sex: Male
  Weight: 81.633 kg

DRUGS (36)
  1. TRASYLOL [Suspect]
     Indication: CORONARY ARTERY BYPASS
     Dosage: 1ML INITIAL TEST DOSE
     Route: 042
     Dates: start: 20070212, end: 20070212
  2. PLAVIX [Concomitant]
     Indication: PRODUCT USED FOR UNKNOWN INDICATION
     Dosage: 75 MG
     Route: 048
     Dates: start: 20070208, end: 20070208
  3. CISATRACURIUM [Concomitant]
     Indication: PRODUCT USED FOR UNKNOWN INDICATION
     Dosage: 10 MG
     Route: 042
     Dates: start: 20070212, end: 20070212
  4. LOVENOX [Concomitant]
     Indication: PRODUCT USED FOR UNKNOWN INDICATION
     Dosage: 30MG
     Dates: start: 20070208, end: 20070222
  5. FENTANYL [Concomitant]
     Indication: PRODUCT USED FOR UNKNOWN INDICATION
     Dosage: 25 MCG
     Route: 042
     Dates: start: 20070208, end: 20070208
  6. VALIUM [Concomitant]
     Indication: PRODUCT USED FOR UNKNOWN INDICATION
     Dosage: 5MG
     Route: 042
     Dates: start: 20070208, end: 20070208
  7. MAGNESIUM [Concomitant]
     Indication: PRODUCT USED FOR UNKNOWN INDICATION
     Dosage: UNK
     Route: 042
     Dates: start: 20070212, end: 20070212
  8. TRASYLOL [Suspect]
     Dosage: 25ML/HOUR
     Route: 042
     Dates: start: 20070212, end: 20070212
  9. AMIODARONE HCL [Concomitant]
     Indication: PRODUCT USED FOR UNKNOWN INDICATION
     Dosage: 70ML PER HOUR
     Route: 042
     Dates: start: 20070208, end: 20071218
  10. TOPROL-XL [Concomitant]
     Indication: PRODUCT USED FOR UNKNOWN INDICATION
     Dosage: 50MG DAILY
     Route: 048
     Dates: start: 20070208, end: 20070218
  11. VANCOMYCIN [Concomitant]
     Indication: PRODUCT USED FOR UNKNOWN INDICATION
     Dosage: 1 GM
     Route: 042
     Dates: start: 20070212, end: 20070214
  12. VERSED [Concomitant]
     Dosage: 10MG
     Route: 042
     Dates: start: 20070212, end: 20070212
  13. CALCIUM CHLORIDE [Concomitant]
     Indication: PRODUCT USED FOR UNKNOWN INDICATION
     Dosage: UNK
     Route: 042
     Dates: start: 20070212, end: 20070212
  14. CEFAZOLIN [Concomitant]
     Indication: PRODUCT USED FOR UNKNOWN INDICATION
     Dosage: 1.5GM
     Route: 042
     Dates: start: 20070212, end: 20070212
  15. TRASYLOL [Suspect]
     Dosage: 100ML LOADING DOSE
     Route: 042
     Dates: start: 20070212, end: 20070212
  16. VERSED [Concomitant]
     Indication: PRODUCT USED FOR UNKNOWN INDICATION
     Dosage: 2 MG
     Route: 042
     Dates: start: 20070208, end: 20070208
  17. PRAVACHOL [Concomitant]
     Indication: PRODUCT USED FOR UNKNOWN INDICATION
     Dosage: 80MG DAILY
     Route: 048
     Dates: start: 20070209, end: 20070218
  18. ETOMIDATE [Concomitant]
     Indication: PRODUCT USED FOR UNKNOWN INDICATION
     Dosage: 20MG
     Route: 042
     Dates: start: 20070212, end: 20070212
  19. PAVULON [Concomitant]
     Indication: PRODUCT USED FOR UNKNOWN INDICATION
     Dosage: 60MG
     Route: 042
     Dates: start: 20070212, end: 20070212
  20. INSULIN [Concomitant]
     Indication: PRODUCT USED FOR UNKNOWN INDICATION
     Dosage: 90UNITS
     Route: 042
     Dates: start: 20070212, end: 20070212
  21. PANCURONIUM BROMIDE [Concomitant]
     Indication: PRODUCT USED FOR UNKNOWN INDICATION
     Dosage: 2MG
     Route: 042
     Dates: start: 20070212, end: 20070212
  22. NOREPINEPHRINE BITARTRATE [Concomitant]
     Indication: PRODUCT USED FOR UNKNOWN INDICATION
     Dosage: TITRATED
     Dates: start: 20070212, end: 20070212
  23. SUFENTA PRESERVATIVE FREE [Concomitant]
     Indication: PRODUCT USED FOR UNKNOWN INDICATION
     Dosage: 100MG
     Route: 042
     Dates: start: 20070212, end: 20070212
  24. RED BLOOD CELLS [Concomitant]
     Dates: start: 20070212, end: 20070212
  25. ASPIRIN [Concomitant]
     Indication: PRODUCT USED FOR UNKNOWN INDICATION
     Dosage: 81MG DAILY
     Route: 048
     Dates: end: 20070218
  26. IPRATROPIUM BROMIDE [Concomitant]
     Indication: PRODUCT USED FOR UNKNOWN INDICATION
     Dosage: 0.2MG/2.5ML
     Dates: start: 20070209, end: 20070218
  27. LEVALBUTEROL HCL [Concomitant]
     Indication: PRODUCT USED FOR UNKNOWN INDICATION
     Dosage: 12.5MG/3ML
     Dates: start: 20070209, end: 20070218
  28. FENTANYL [Concomitant]
     Dosage: 0.6MG
     Route: 042
     Dates: start: 20070212, end: 20070215
  29. EPINEPHRINE [Concomitant]
     Indication: PRODUCT USED FOR UNKNOWN INDICATION
     Dosage: UNK
     Route: 042
     Dates: start: 20070212, end: 20070212
  30. PROTAMINE SULFATE [Concomitant]
     Indication: PRODUCT USED FOR UNKNOWN INDICATION
     Dosage: 500MG
     Route: 042
     Dates: start: 20070212, end: 20070212
  31. METOPROLOL [Concomitant]
     Indication: PRODUCT USED FOR UNKNOWN INDICATION
     Dosage: 50MG
     Route: 048
     Dates: start: 20070209, end: 20070218
  32. NITROGLYCERIN [Concomitant]
     Indication: PRODUCT USED FOR UNKNOWN INDICATION
     Dosage: 50MG/250ML
     Route: 042
     Dates: start: 20070208
  33. DOBUTAMINE [Concomitant]
     Indication: PRODUCT USED FOR UNKNOWN INDICATION
     Dosage: 7.5MCG
     Route: 042
     Dates: start: 20070212, end: 20070212
  34. LEVOPHED [Concomitant]
     Indication: PRODUCT USED FOR UNKNOWN INDICATION
     Dosage: 15MCG
     Route: 042
     Dates: start: 20070212, end: 20070212
  35. XANAX [Concomitant]
     Indication: PRODUCT USED FOR UNKNOWN INDICATION
     Dosage: 0.25MG THREE TIMES A DAY
     Route: 048
     Dates: start: 20070208, end: 20070218
  36. PROTONIX [Concomitant]
     Indication: PRODUCT USED FOR UNKNOWN INDICATION
     Dosage: 40MG DAILY
     Route: 048
     Dates: start: 20070209, end: 20070218

REACTIONS (7)
  - MENTAL DISORDER [None]
  - RENAL FAILURE ACUTE [None]
  - RENAL FAILURE [None]
  - DEPRESSION [None]
  - INJURY [None]
  - PAIN [None]
  - UNEVALUABLE EVENT [None]
